FAERS Safety Report 8613816-2 (Version None)
Quarter: 2012Q3

REPORT INFORMATION
  Report Type: 
  Country: None (occurrence: None)
  Receive Date: 20120823
  Receipt Date: 20120815
  Transmission Date: 20120928
  Serious: No
  Sender: FDA-Public Use
  Company Number: US-BIOGENIDEC-2012BI031869

PATIENT
  Age: 48 Year
  Sex: Female

DRUGS (3)
  1. CELEXA [Concomitant]
     Indication: DEPRESSION
  2. CLONAZEPAM [Concomitant]
     Indication: ANXIETY
  3. AVONEX [Suspect]
     Indication: MULTIPLE SCLEROSIS
     Route: 030
     Dates: start: 20120629, end: 20120713

REACTIONS (4)
  - SOMNOLENCE [None]
  - IRRITABILITY [None]
  - CHILLS [None]
  - DIARRHOEA [None]
